FAERS Safety Report 19835268 (Version 2)
Quarter: 2021Q4

REPORT INFORMATION
  Report Type: Spontaneous
  Country: IT (occurrence: IT)
  Receive Date: 20210914
  Receipt Date: 20211013
  Transmission Date: 20220304
  Serious: Yes (Hospitalization)
  Sender: FDA-Public Use
  Company Number: None

PATIENT
  Age: 74 Year
  Sex: Female

DRUGS (13)
  1. KISQALI [Suspect]
     Active Substance: RIBOCICLIB
     Indication: Metaplastic breast carcinoma
     Dosage: 600 MG, QD
     Route: 048
     Dates: start: 20210625, end: 20210715
  2. CATAPRES-TTS [Concomitant]
     Active Substance: CLONIDINE
     Indication: Hypertension
     Dosage: 5 MG
     Route: 062
  3. FERROUS SULFATE [Concomitant]
     Active Substance: FERROUS SULFATE
     Indication: Anaemia
     Dosage: 105 MG
     Route: 048
  4. FOLINA [Concomitant]
     Indication: Folate deficiency
     Dosage: 5 MG
     Route: 048
  5. LETRIX [Concomitant]
     Indication: Metaplastic breast carcinoma
     Dosage: 2.5 MG
     Route: 048
  6. SODIO BICARBONATO [Concomitant]
     Indication: Hyperchlorhydria
     Dosage: 500 MG
     Route: 048
  7. IRBESARTAN [Concomitant]
     Active Substance: IRBESARTAN
     Indication: Hypertension
     Dosage: 150 MG
     Route: 048
  8. ALPRAZOLAM [Concomitant]
     Active Substance: ALPRAZOLAM
     Indication: Anxiety
     Dosage: 0.25 MG
     Route: 048
  9. CHOLECALCIFEROL [Concomitant]
     Active Substance: CHOLECALCIFEROL
     Indication: Vitamin D deficiency
     Dosage: 1 DF
     Route: 048
  10. FLUOXETINE [Concomitant]
     Active Substance: FLUOXETINE HYDROCHLORIDE
     Indication: Major depression
     Dosage: 20 MG
     Route: 048
  11. LASIX [Concomitant]
     Active Substance: FUROSEMIDE
     Indication: Hypertension
     Dosage: 25 MG
     Route: 048
  12. DAFLON [Concomitant]
     Indication: Peripheral venous disease
     Dosage: 500 MG
     Route: 048
  13. ESOMEPRAZOLE SODIUM [Concomitant]
     Active Substance: ESOMEPRAZOLE SODIUM
     Indication: Prophylaxis against gastrointestinal ulcer
     Dosage: 40 MG
     Route: 048

REACTIONS (4)
  - Lymphoedema [Recovered/Resolved with Sequelae]
  - Skin ulcer [Recovered/Resolved with Sequelae]
  - Injury [Recovered/Resolved with Sequelae]
  - Deep vein thrombosis [Recovered/Resolved with Sequelae]

NARRATIVE: CASE EVENT DATE: 20210720
